FAERS Safety Report 17331224 (Version 3)
Quarter: 2022Q1

REPORT INFORMATION
  Report Type: Other
  Country: US (occurrence: US)
  Receive Date: 20200127
  Receipt Date: 20220307
  Transmission Date: 20220423
  Serious: Yes (Death, Hospitalization, Other)
  Sender: FDA-Public Use
  Company Number: US-BIOGEN-2019BI00689953

PATIENT
  Age: 53 Year
  Sex: Male
  Weight: 92 kg

DRUGS (28)
  1. AMPYRA [Suspect]
     Active Substance: DALFAMPRIDINE
     Indication: Gait disturbance
     Dosage: 10 MG, BID
     Route: 048
  2. AMPYRA [Suspect]
     Active Substance: DALFAMPRIDINE
     Indication: Multiple sclerosis
     Dosage: 10 MG, BID
     Route: 048
     Dates: start: 20160906, end: 201901
  3. AMPYRA [Suspect]
     Active Substance: DALFAMPRIDINE
     Indication: Ataxia
  4. AMPYRA [Suspect]
     Active Substance: DALFAMPRIDINE
     Indication: Relapsing-remitting multiple sclerosis
  5. TYSABRI [Suspect]
     Active Substance: NATALIZUMAB
     Indication: Multiple sclerosis
     Dosage: UNK
     Route: 050
     Dates: start: 20130129, end: 20140606
  6. TYSABRI [Suspect]
     Active Substance: NATALIZUMAB
     Dosage: 300 MILLIGRAM (INFUSED OVER ONE HOUR)
     Route: 042
     Dates: start: 20180108
  7. TYSABRI [Suspect]
     Active Substance: NATALIZUMAB
     Dosage: 300 MILLIGRAM, MONTHLY
     Route: 042
     Dates: start: 20180713
  8. DALFAMPRIDINE [Concomitant]
     Active Substance: DALFAMPRIDINE
     Indication: Gait disturbance
     Dosage: 10 MG, BID
     Route: 048
     Dates: start: 201901
  9. SIMVASTATIN [Concomitant]
     Active Substance: SIMVASTATIN
     Indication: Product used for unknown indication
     Dosage: 20 MILLIGRAM, QD
     Route: 048
  10. TERAZOSIN HYDROCHLORIDE [Concomitant]
     Active Substance: TERAZOSIN HYDROCHLORIDE
     Indication: Product used for unknown indication
     Dosage: 5 MILLIGRAM, QD
     Route: 048
  11. GABAPENTIN [Concomitant]
     Active Substance: GABAPENTIN
     Indication: Myoclonus
     Dosage: 1 1/2 PO
     Route: 048
  12. REVATIO [Concomitant]
     Active Substance: SILDENAFIL CITRATE
     Indication: Product used for unknown indication
     Dosage: 20 MILLIGRAM, QD
     Route: 048
  13. VITAMIN D3 [Concomitant]
     Active Substance: CHOLECALCIFEROL
     Indication: Product used for unknown indication
     Dosage: 2000 INTERNATIONAL UNIT, QD
     Route: 048
  14. ACETAMINOPHEN\HYDROCODONE [Concomitant]
     Active Substance: ACETAMINOPHEN\HYDROCODONE
     Indication: Product used for unknown indication
     Dosage: 10-325 MG 1 Q 4-6 HR PRN
     Route: 048
  15. ASPIRIN [Concomitant]
     Active Substance: ASPIRIN
     Indication: Product used for unknown indication
     Dosage: 325 MILLIGRAM, BID
     Route: 048
  16. BENZONATATE [Concomitant]
     Active Substance: BENZONATATE
     Indication: Product used for unknown indication
     Dosage: 200 MILLIGRAM, QD
     Route: 048
  17. ADVIL [Concomitant]
     Active Substance: IBUPROFEN
     Indication: Product used for unknown indication
     Dosage: 200 MILLIGRAM, TAKE 4 TABLETS EVERY 8 HORUS AS NEEDED
     Route: 048
  18. CYANOCOBALAMIN [Concomitant]
     Active Substance: CYANOCOBALAMIN
     Indication: Product used for unknown indication
     Dosage: 1000 MICROGRAM PMCE A WEEK
     Route: 030
  19. FLUTICASONE PROPIONATE [Concomitant]
     Active Substance: FLUTICASONE PROPIONATE
     Indication: Product used for unknown indication
     Dosage: 50 MICROGRAM, 2 SPRAYS IN EACH NOSTRIL DAILY
     Route: 045
  20. BACLOFEN [Concomitant]
     Active Substance: BACLOFEN
     Indication: Product used for unknown indication
     Dosage: 10 MILLIGRAM, 6X/QD
     Route: 048
  21. Movantic [Concomitant]
     Indication: Product used for unknown indication
     Dosage: 1/2 PRN
     Route: 048
  22. MIRABEGRON [Concomitant]
     Active Substance: MIRABEGRON
     Indication: Product used for unknown indication
     Dosage: 5 MILLIGRAM, QD
     Route: 065
  23. TEMAZEPAM [Concomitant]
     Active Substance: TEMAZEPAM
     Indication: Product used for unknown indication
     Dosage: 1 DOSAGE FORM, QD
     Route: 048
  24. BENAZEPRIL AND HYDROCHLOROTHIAZIDE [Concomitant]
     Active Substance: BENAZEPRIL HYDROCHLORIDE\HYDROCHLOROTHIAZIDE
     Indication: Hypertension
     Dosage: 20-25 MG, QD
     Route: 048
  25. BELSOMRA [Concomitant]
     Active Substance: SUVOREXANT
     Indication: Product used for unknown indication
     Dosage: 15 MILLIGRAM, QD, QHS
     Route: 048
  26. NORCO [Concomitant]
     Active Substance: ACETAMINOPHEN\HYDROCODONE BITARTRATE
     Indication: Product used for unknown indication
     Dosage: UNK
     Route: 065
  27. PROPRANOLOL [Concomitant]
     Active Substance: PROPRANOLOL HYDROCHLORIDE
     Indication: Product used for unknown indication
     Dosage: UNK
     Route: 065
  28. ATROPINE OPHTHALMIC [Concomitant]
     Indication: Product used for unknown indication
     Dosage: 2 DROP, Q 2 HRS; PRN
     Route: 060
     Dates: start: 20211007

REACTIONS (83)
  - Pneumonia [Fatal]
  - Sepsis [Fatal]
  - Respiratory failure [Fatal]
  - Pulmonary congestion [Unknown]
  - Influenza [Recovered/Resolved]
  - Prostatitis [Recovered/Resolved]
  - Pyrexia [Recovered/Resolved]
  - Moaning [Recovered/Resolved]
  - Paralysis [Recovered/Resolved]
  - Hernia [Recovered/Resolved]
  - Coronary artery disease [Not Recovered/Not Resolved]
  - Deafness [Not Recovered/Not Resolved]
  - Gait disturbance [Recovered/Resolved]
  - Generalised tonic-clonic seizure [Unknown]
  - Urinary tract infection [Recovered/Resolved]
  - Urinary tract infection [Recovered/Resolved]
  - Seizure [Unknown]
  - Amnesia [Not Recovered/Not Resolved]
  - General physical health deterioration [Not Recovered/Not Resolved]
  - Neurological symptom [Not Recovered/Not Resolved]
  - Condition aggravated [Not Recovered/Not Resolved]
  - Dysmetria [Unknown]
  - Muscle spasms [Not Recovered/Not Resolved]
  - Hypoaesthesia [Not Recovered/Not Resolved]
  - Disturbance in attention [Not Recovered/Not Resolved]
  - Neuralgia [Not Recovered/Not Resolved]
  - Tinnitus [Not Recovered/Not Resolved]
  - Ocular hyperaemia [Not Recovered/Not Resolved]
  - Diplopia [Unknown]
  - Vision blurred [Not Recovered/Not Resolved]
  - Anosmia [Not Recovered/Not Resolved]
  - Dysuria [Not Recovered/Not Resolved]
  - Pollakiuria [Unknown]
  - Urinary incontinence [Not Recovered/Not Resolved]
  - Stomatitis [Unknown]
  - Ageusia [Not Recovered/Not Resolved]
  - Dry mouth [Not Recovered/Not Resolved]
  - Dysarthria [Recovering/Resolving]
  - Dysphonia [Not Recovered/Not Resolved]
  - Dysphagia [Not Recovered/Not Resolved]
  - Increased tendency to bruise [Not Recovered/Not Resolved]
  - Photosensitivity reaction [Not Recovered/Not Resolved]
  - Peripheral coldness [Not Recovered/Not Resolved]
  - Oedema peripheral [Not Recovered/Not Resolved]
  - Hypertension [Not Recovered/Not Resolved]
  - Night sweats [Not Recovered/Not Resolved]
  - Arthralgia [Not Recovered/Not Resolved]
  - Tenderness [Not Recovered/Not Resolved]
  - Wheezing [Not Recovered/Not Resolved]
  - Snoring [Not Recovered/Not Resolved]
  - Sexual dysfunction [Not Recovered/Not Resolved]
  - Prostatic disorder [Not Recovered/Not Resolved]
  - Haemorrhage urinary tract [Unknown]
  - Suprapubic pain [Unknown]
  - Tongue movement disturbance [Not Recovered/Not Resolved]
  - Bladder spasm [Not Recovered/Not Resolved]
  - Depression [Not Recovered/Not Resolved]
  - Pain in extremity [Unknown]
  - Central nervous system lesion [Unknown]
  - Hyperlipidaemia [Not Recovered/Not Resolved]
  - Glucose tolerance impaired [Not Recovered/Not Resolved]
  - Obesity [Not Recovered/Not Resolved]
  - Vitamin B12 deficiency [Not Recovered/Not Resolved]
  - Temperature intolerance [Not Recovered/Not Resolved]
  - Parkinson^s disease [Unknown]
  - Tic [Unknown]
  - Chorea [Not Recovered/Not Resolved]
  - Bruxism [Not Recovered/Not Resolved]
  - Bradykinesia [Not Recovered/Not Resolved]
  - Myoclonus [Unknown]
  - Motion sickness [Unknown]
  - Agitation [Unknown]
  - Tremor [Not Recovered/Not Resolved]
  - Anxiety [Not Recovered/Not Resolved]
  - Dyspnoea [Not Recovered/Not Resolved]
  - Tremor [Not Recovered/Not Resolved]
  - Gastrointestinal motility disorder [Not Recovered/Not Resolved]
  - Asthenia [Not Recovered/Not Resolved]
  - Dizziness [Recovering/Resolving]
  - Insomnia [Unknown]
  - Constipation [Not Recovered/Not Resolved]
  - Multiple sclerosis relapse [Not Recovered/Not Resolved]
  - Balance disorder [Not Recovered/Not Resolved]

NARRATIVE: CASE EVENT DATE: 20171101
